FAERS Safety Report 13948858 (Version 2)
Quarter: 2017Q3

REPORT INFORMATION
  Report Type: Spontaneous
  Country: JP (occurrence: JP)
  Receive Date: 20170908
  Receipt Date: 20170922
  Transmission Date: 20171128
  Serious: Yes (Death)
  Sender: FDA-Public Use
  Company Number: JP-SHIONOGI, INC-2017000627

PATIENT
  Age: 72 Year
  Sex: Female
  Weight: 38 kg

DRUGS (11)
  1. NOVAMIN                            /00013301/ [Concomitant]
     Active Substance: PROCHLORPERAZINE
     Indication: CANCER PAIN
     Dosage: 5 MG, TID
     Route: 048
     Dates: start: 20170717, end: 20170809
  2. SODIUM RABEPRAZOLE [Concomitant]
     Active Substance: RABEPRAZOLE SODIUM
     Indication: METASTASES TO BONE
  3. PREDNISOLONE. [Concomitant]
     Active Substance: PREDNISOLONE
     Indication: METASTASES TO BONE
  4. FUROSEMIDE. [Concomitant]
     Active Substance: FUROSEMIDE
     Indication: OVARIAN CANCER
     Dosage: 10 MG, QD
     Route: 048
     Dates: end: 20170809
  5. PREDNISOLONE. [Concomitant]
     Active Substance: PREDNISOLONE
     Indication: METASTASES TO LUNG
     Dosage: 5 MG, QD
     Route: 048
     Dates: end: 20170809
  6. SENNOSIDE                          /00571901/ [Suspect]
     Active Substance: SENNOSIDES A AND B
     Indication: CONSTIPATION
     Dosage: 12 MG, QD
     Route: 048
     Dates: end: 20170809
  7. SYMPROIC [Suspect]
     Active Substance: NALDEMEDINE
     Indication: CONSTIPATION
     Dosage: 0.2 MG, QD
     Route: 048
     Dates: start: 20170721, end: 20170721
  8. OXYCODONE [Concomitant]
     Active Substance: OXYCODONE
     Indication: CANCER PAIN
     Dosage: 5 MG, BID
     Route: 048
     Dates: start: 20170717, end: 20170809
  9. SODIUM RABEPRAZOLE [Concomitant]
     Active Substance: RABEPRAZOLE SODIUM
     Indication: METASTASES TO LUNG
     Dosage: 10 MG, QD
     Route: 048
     Dates: end: 20170809
  10. CALONAL [Concomitant]
     Active Substance: ACETAMINOPHEN
     Indication: CANCER PAIN
     Dosage: 400 MG, QID
     Route: 048
     Dates: end: 20170809
  11. DENOTAS [Concomitant]
     Active Substance: CALCIUM CARBONATE\CHOLECALCIFEROL\MAGNESIUM CARBONATE
     Indication: HYPOCALCAEMIA
     Dosage: 2 DF, QD
     Route: 048
     Dates: end: 20170809

REACTIONS (2)
  - Respiratory failure [Fatal]
  - Diarrhoea [Recovering/Resolving]

NARRATIVE: CASE EVENT DATE: 20170721
